FAERS Safety Report 6274535-3 (Version None)
Quarter: 2009Q3

REPORT INFORMATION
  Report Type: 
  Country: None (occurrence: None)
  Receive Date: 20090716
  Receipt Date: 20090625
  Transmission Date: 20100115
  Serious: Yes (Hospitalization, Other)
  Sender: FDA-Public Use
  Company Number: ADE2009-0698

PATIENT
  Age: 54 Year
  Sex: Male

DRUGS (14)
  1. METOPROLOL SUCCINATE [Suspect]
     Indication: HYPERTENSION
     Dates: start: 20030101, end: 20081001
  2. CITALOPRAM HYDROBROMIDE [Suspect]
     Indication: POST-TRAUMATIC STRESS DISORDER
     Dosage: 40MG DAILY ORAL
     Route: 048
     Dates: start: 20070301, end: 20090514
  3. NEURONTIN [Suspect]
     Indication: PAIN
     Dates: start: 20090220, end: 20090424
  4. TRAMADOL HCL [Suspect]
     Indication: BACK PAIN
     Dates: start: 20081001, end: 20090424
  5. VICODIN [Suspect]
     Indication: PAIN
     Dates: start: 20090424, end: 20090424
  6. DILAUDID [Suspect]
     Indication: PAIN
     Dates: start: 20090220, end: 20090424
  7. XANAX [Concomitant]
  8. ATIVAN [Concomitant]
  9. CLONAZEPAM [Concomitant]
  10. LISINOPRIL [Concomitant]
  11. ACTOS [Concomitant]
  12. ALLOPURINOL [Concomitant]
  13. PRAVACHOL [Concomitant]
  14. IBUPROFEN [Concomitant]

REACTIONS (9)
  - COMPULSIVE SHOPPING [None]
  - DISORIENTATION [None]
  - DIZZINESS [None]
  - HYPOTENSION [None]
  - LOSS OF CONSCIOUSNESS [None]
  - MENTAL STATUS CHANGES [None]
  - OBSESSIVE-COMPULSIVE DISORDER [None]
  - PNEUMONIA FUNGAL [None]
  - SHOPLIFTING [None]
